FAERS Safety Report 14115063 (Version 1)
Quarter: 2017Q4

REPORT INFORMATION
  Report Type: Spontaneous
  Country: CH (occurrence: CH)
  Receive Date: 20171023
  Receipt Date: 20171023
  Transmission Date: 20180321
  Serious: Yes (Hospitalization, Other)
  Sender: FDA-Public Use
  Company Number: CH-PFIZER INC-2016412471

PATIENT
  Sex: Female

DRUGS (3)
  1. XANAX [Suspect]
     Active Substance: ALPRAZOLAM
     Indication: BURNOUT SYNDROME
     Dosage: 0.25 MG, 1X/DAY
     Route: 064
     Dates: start: 20160815, end: 20160819
  2. ST. JOHN^S WORT [Suspect]
     Active Substance: ST. JOHN^S WORT
     Indication: BURNOUT SYNDROME
     Dosage: UNK
     Route: 064
     Dates: start: 20160816, end: 20160819
  3. ZOLDORM [Suspect]
     Active Substance: ZOLPIDEM TARTRATE
     Indication: BURNOUT SYNDROME
     Dosage: 10 MG, 1X/DAY
     Route: 064
     Dates: start: 20160812, end: 20160819

REACTIONS (5)
  - Maternal exposure during pregnancy [Recovered/Resolved]
  - Tachypnoea [Unknown]
  - Premature baby [Unknown]
  - Foetal growth restriction [Unknown]
  - Jaundice neonatal [Unknown]

NARRATIVE: CASE EVENT DATE: 20160812
